FAERS Safety Report 19207799 (Version 1)
Quarter: 2021Q2

REPORT INFORMATION
  Report Type: Spontaneous
  Country: US (occurrence: US)
  Receive Date: 20210503
  Receipt Date: 20210503
  Transmission Date: 20210717
  Serious: No
  Sender: FDA-Public Use
  Company Number: US-ABBVIE-20K-163-3530017-00

PATIENT
  Sex: Female
  Weight: 52.21 kg

DRUGS (1)
  1. CREON [Suspect]
     Active Substance: PANCRELIPASE AMYLASE\PANCRELIPASE LIPASE\PANCRELIPASE PROTEASE
     Indication: PRODUCT USED FOR UNKNOWN INDICATION
     Dosage: TWO CAPSULES WITH EACH MEAL OR SNACK
     Route: 048

REACTIONS (3)
  - Amylase decreased [Unknown]
  - Lipase decreased [Unknown]
  - Body fat disorder [Unknown]
